FAERS Safety Report 18803973 (Version 1)
Quarter: 2021Q1

REPORT INFORMATION
  Report Type: Spontaneous
  Country: US (occurrence: US)
  Receive Date: 20210128
  Receipt Date: 20210128
  Transmission Date: 20210419
  Serious: No
  Sender: FDA-Public Use
  Company Number: US-SA-2021SA026568

PATIENT
  Age: 56 Year
  Sex: Female

DRUGS (1)
  1. CABLIVI [Suspect]
     Active Substance: CAPLACIZUMAB-YHDP
     Indication: IMMUNE THROMBOCYTOPENIA
     Dosage: 11 MG, QD
     Route: 058
     Dates: start: 20210113

REACTIONS (3)
  - Epistaxis [Unknown]
  - Off label use [Unknown]
  - Gingival bleeding [Unknown]

NARRATIVE: CASE EVENT DATE: 2021
